FAERS Safety Report 5291216-3 (Version None)
Quarter: 2007Q2

REPORT INFORMATION
  Report Type: 
  Country: None (occurrence: None)
  Receive Date: 20070409
  Receipt Date: 20070307
  Transmission Date: 20071010
  Serious: Yes (Death, Hospitalization, Other)
  Sender: FDA-Public Use
  Company Number: US-PFIZER INC-2005103222

PATIENT
  Sex: Male

DRUGS (9)
  1. BEXTRA [Suspect]
     Indication: ARTHRITIS
     Dates: start: 20020628, end: 20031114
  2. VIOXX [Suspect]
     Dates: start: 20000401, end: 20031101
  3. ACCUPRIL [Concomitant]
  4. COREG [Concomitant]
  5. ACETYLSALICYLIC ACID SRT [Concomitant]
  6. ZOCOR [Concomitant]
     Route: 045
  7. PLAVIX [Concomitant]
  8. OXYCONTIN [Concomitant]
  9. WELLBUTRIN [Concomitant]

REACTIONS (3)
  - CARDIAC ARREST [None]
  - MYOCARDIAL INFARCTION [None]
  - RESPIRATORY ARREST [None]
